FAERS Safety Report 11266078 (Version 1)
Quarter: 2015Q3

REPORT INFORMATION
  Report Type: Other
  Country: US (occurrence: US)
  Receive Date: 20150713
  Receipt Date: 20150713
  Transmission Date: 20151125
  Serious: Yes (Hospitalization)
  Sender: FDA-Public Use
  Company Number: US-FRI-1000077846

PATIENT
  Age: 19 Month
  Sex: Female
  Weight: 10.8 kg

DRUGS (1)
  1. VILAZODONE [Suspect]
     Active Substance: VILAZODONE
     Dosage: ESTIMATED INGESTION OF 10 TABLETS OF 40 MG

REACTIONS (9)
  - Mental status changes [Recovered/Resolved]
  - Slow response to stimuli [Recovered/Resolved]
  - Seizure [Recovered/Resolved]
  - Accidental exposure to product by child [Recovered/Resolved]
  - Clonus [Recovered/Resolved]
  - Tachycardia [Recovered/Resolved]
  - Muscle rigidity [Recovered/Resolved]
  - Toxicity to various agents [Recovered/Resolved]
  - Sluggishness [Recovered/Resolved]
